FAERS Safety Report 9491637 (Version 2)
Quarter: 2013Q1

REPORT INFORMATION
  Report Type: Not Available
  Country: US (occurrence: US)
  Receive Date: 20121219
  Receipt Date: 20121219
  Transmission Date: 20140127
  Serious: Yes (Other)
  Sender: FDA-Public Use
  Company Number: US-LUNDBECK-DKLU1084484

PATIENT
  Age: 7 Year
  Sex: Male

DRUGS (1)
  1. ONFI [Suspect]
     Indication: MYOCLONIC EPILEPSY
     Dates: start: 20120903, end: 20120904

REACTIONS (3)
  - Convulsion [Not Recovered/Not Resolved]
  - Abnormal behaviour [Unknown]
  - Somnolence [Unknown]
